FAERS Safety Report 11241307 (Version 3)
Quarter: 2015Q3

REPORT INFORMATION
  Report Type: Spontaneous
  Country: IT (occurrence: IT)
  Receive Date: 20150706
  Receipt Date: 20150728
  Transmission Date: 20151125
  Serious: Yes (Hospitalization)
  Sender: FDA-Public Use
  Company Number: IT-TEVA-575577ACC

PATIENT
  Age: 43 Year
  Sex: Female

DRUGS (3)
  1. IBUPROFENE ALTER - 600 MG COMPRESSE RIVESTITE CON FILM [Suspect]
     Active Substance: IBUPROFEN
     Dosage: 400
  2. AMOXICILLINA RATIOPHARM - 1 G COMPRESSE - TEVA ITALIA S.P.A. [Suspect]
     Active Substance: AMOXICILLIN
     Indication: TOOTH ABSCESS
     Dosage: 2 GRAM DAILY; 2 G DAILY
     Route: 048
     Dates: start: 20150616, end: 20150621
  3. IBUPROFENE ALTER - 600 MG COMPRESSE RIVESTITE CON FILM [Suspect]
     Active Substance: IBUPROFEN
     Indication: ANTIINFLAMMATORY THERAPY
     Dosage: 600 MG AS NECESSARY
     Route: 048
     Dates: start: 20150621, end: 20150622

REACTIONS (4)
  - Hyperchlorhydria [Recovered/Resolved]
  - Abdominal pain upper [Recovered/Resolved]
  - Gastritis [Recovered/Resolved]
  - Vomiting [Recovered/Resolved]

NARRATIVE: CASE EVENT DATE: 20150621
